FAERS Safety Report 5562726-6 (Version None)
Quarter: 2007Q4

REPORT INFORMATION
  Report Type: 
  Country: None (occurrence: None)
  Receive Date: 20071217
  Receipt Date: 20071207
  Transmission Date: 20080405
  Serious: Yes (Hospitalization, Other)
  Sender: FDA-Public Use
  Company Number: PHBS2007JP20602

PATIENT

DRUGS (1)
  1. RITALIN [Suspect]
     Indication: DEPRESSION
     Route: 048

REACTIONS (4)
  - DRUG DEPENDENCE [None]
  - GASTROINTESTINAL DISORDER [None]
  - LOWER LIMB FRACTURE [None]
  - SUICIDE ATTEMPT [None]
